FAERS Safety Report 9202008 (Version 1)
Quarter: 2013Q1

REPORT INFORMATION
  Report Type: Spontaneous
  Country: US (occurrence: None)
  Receive Date: 20130328
  Receipt Date: 20130328
  Transmission Date: 20140127
  Serious: Yes (Other)
  Sender: FDA-Public Use
  Company Number: 2013SA011591

PATIENT
  Age: 14 Year
  Sex: Male
  Weight: 57 kg

DRUGS (3)
  1. ICY HOT BALM [Suspect]
     Indication: BACK DISORDER
     Dates: start: 201301, end: 201302
  2. VALIUM [Concomitant]
  3. OXYCODONE [Concomitant]

REACTIONS (3)
  - Blister [None]
  - Thermal burn [None]
  - Erythema [None]
